FAERS Safety Report 12127392 (Version 2)
Quarter: 2016Q1

REPORT INFORMATION
  Report Type: Spontaneous
  Country: PT (occurrence: PT)
  Receive Date: 20160229
  Receipt Date: 20160331
  Transmission Date: 20160526
  Serious: Yes (Other)
  Sender: FDA-Public Use
  Company Number: PT-SA-2016SA035800

PATIENT
  Age: 40 Year
  Sex: Female

DRUGS (1)
  1. LOVENOX [Suspect]
     Active Substance: ENOXAPARIN SODIUM
     Route: 051

REACTIONS (1)
  - Cerebral artery occlusion [Unknown]

NARRATIVE: CASE EVENT DATE: 2014
